FAERS Safety Report 10037261 (Version 3)
Quarter: 2014Q4

REPORT INFORMATION
  Report Type: Spontaneous
  Country: US (occurrence: US)
  Receive Date: 20140326
  Receipt Date: 20141231
  Transmission Date: 20150528
  Serious: Yes (Hospitalization)
  Sender: FDA-Public Use
  Company Number: US-BAYER-2014-044970

PATIENT
  Age: 36 Year
  Sex: Female
  Weight: 55 kg

DRUGS (4)
  1. YASMIN [Suspect]
     Active Substance: DROSPIRENONE\ETHINYL ESTRADIOL
     Indication: CONTRACEPTION
     Dosage: UNK
     Route: 048
     Dates: start: 200403, end: 200609
  2. DOCUSATE [Concomitant]
     Active Substance: DOCUSATE
  3. PEPCID [Concomitant]
     Active Substance: FAMOTIDINE
  4. LEXAPRO [Concomitant]
     Active Substance: ESCITALOPRAM OXALATE
     Indication: ANTIDEPRESSANT THERAPY
     Dosage: UNK
     Route: 048
     Dates: start: 200508, end: 200908

REACTIONS (12)
  - Hemiplegia [None]
  - Balance disorder [None]
  - Hypoaesthesia [None]
  - Bradyphrenia [None]
  - Aphagia [None]
  - Gait disturbance [None]
  - Dysphonia [None]
  - Diplopia [None]
  - Fatigue [None]
  - Cerebrovascular accident [None]
  - Injury [None]
  - Pain [None]

NARRATIVE: CASE EVENT DATE: 20060926
